FAERS Safety Report 8999669 (Version 1)
Quarter: 2013Q1

REPORT INFORMATION
  Report Type: Report from Study
  Country: GB (occurrence: GB)
  Receive Date: 20130102
  Receipt Date: 20130102
  Transmission Date: 20140127
  Serious: Yes (Hospitalization)
  Sender: FDA-Public Use
  Company Number: GB-ASTELLAS-2012EU011310

PATIENT
  Age: 13 Year
  Sex: Male
  Weight: 28.8 kg

DRUGS (1)
  1. TACROLIMUS CAPSULES [Suspect]
     Indication: RENAL TRANSPLANT
     Dosage: 3 MG, BID
     Route: 048
     Dates: start: 20121102

REACTIONS (1)
  - Incision site pain [Recovered/Resolved]
